FAERS Safety Report 23525152 (Version 1)
Quarter: 2024Q1

REPORT INFORMATION
  Report Type: Other
  Country: US (occurrence: None)
  Receive Date: 20240215
  Receipt Date: 20240215
  Transmission Date: 20240410
  Serious: Yes (Hospitalization)
  Sender: FDA-Public Use
  Company Number: US-ROCHE-3505142

PATIENT
  Age: 47 Year
  Sex: Female
  Weight: 78.088 kg

DRUGS (1)
  1. ACTEMRA [Suspect]
     Active Substance: TOCILIZUMAB
     Indication: Rheumatoid arthritis
     Dosage: 8 MG/KG
     Route: 042
     Dates: start: 202310, end: 20240117

REACTIONS (9)
  - Gastrointestinal disorder [Recovered/Resolved]
  - Asthenia [Not Recovered/Not Resolved]
  - Blood pressure decreased [Recovered/Resolved]
  - Nausea [Recovered/Resolved]
  - Eating disorder symptom [Recovered/Resolved]
  - Chest pain [Recovered/Resolved]
  - Oral mucosal blistering [Recovered/Resolved]
  - Dizziness [Not Recovered/Not Resolved]
  - Loss of consciousness [Recovered/Resolved]

NARRATIVE: CASE EVENT DATE: 20240117
